FAERS Safety Report 9143812 (Version 1)
Quarter: 2013Q1

REPORT INFORMATION
  Report Type: Spontaneous
  Country: ES (occurrence: ES)
  Receive Date: 20130306
  Receipt Date: 20130306
  Transmission Date: 20140127
  Serious: Yes (Other)
  Sender: FDA-Public Use
  Company Number: PHHY2013ES020370

PATIENT
  Age: 4 Year
  Sex: Male

DRUGS (2)
  1. METHOTREXATE [Suspect]
     Indication: ACUTE LYMPHOCYTIC LEUKAEMIA
     Dosage: 3 MG/M2, 3 TIMES
     Route: 042
  2. METHOTREXATE [Suspect]
     Dosage: 12 MG, 5 TIMES
     Route: 037

REACTIONS (6)
  - Neurotoxicity [Recovering/Resolving]
  - Demyelination [Recovering/Resolving]
  - Leukoencephalopathy [Recovered/Resolved]
  - Somnolence [Recovered/Resolved]
  - Diplopia [Recovered/Resolved]
  - Paresis cranial nerve [Recovered/Resolved]
